FAERS Safety Report 8313948-2 (Version None)
Quarter: 2012Q2

REPORT INFORMATION
  Report Type: 
  Country: None (occurrence: None)
  Receive Date: 20120426
  Receipt Date: 20110808
  Transmission Date: 20120825
  Serious: Yes (Other)
  Sender: FDA-Public Use
  Company Number: US-TEVA-US021748

PATIENT
  Age: 50 Year
  Sex: Female

DRUGS (3)
  1. PROVIGIL [Suspect]
     Dosage: 200 MILLIGRAM;
     Route: 048
     Dates: end: 20071101
  2. WELLBUTRIN XL [Concomitant]
     Route: 065
  3. LEXAPRO [Concomitant]
     Route: 065

REACTIONS (1)
  - HYPERTENSION [None]
